FAERS Safety Report 7921057-7 (Version None)
Quarter: 2011Q4

REPORT INFORMATION
  Report Type: 
  Country: None (occurrence: None)
  Receive Date: 20111117
  Receipt Date: 20111114
  Transmission Date: 20120403
  Serious: Yes (Other)
  Sender: FDA-Public Use
  Company Number: ES-MERCK-1105ESP00083

PATIENT
  Age: 7 Year
  Sex: Male

DRUGS (1)
  1. SINGULAIR [Suspect]
     Indication: RHINITIS
     Route: 048
     Dates: start: 20080101, end: 20080101

REACTIONS (2)
  - SUICIDAL IDEATION [None]
  - HALLUCINATION, AUDITORY [None]
